FAERS Safety Report 5219047-0 (Version None)
Quarter: 2007Q1

REPORT INFORMATION
  Report Type: 
  Country: None (occurrence: None)
  Receive Date: 20070122
  Receipt Date: 20070116
  Transmission Date: 20070707
  Serious: Yes (Life-Threatening, Hospitalization)
  Sender: FDA-Public Use
  Company Number: TPA2006A01852

PATIENT
  Age: 60 Year
  Sex: Male
  Weight: 91.5 kg

DRUGS (28)
  1. PIOGLITAZONE HCL [Suspect]
     Indication: GLUCOSE TOLERANCE IMPAIRED
     Dosage: QAM, PER ORAL
     Route: 048
     Dates: start: 20040805
  2. ASPIRIN [Concomitant]
  3. TERAZOSIN HCL [Concomitant]
  4. INDOPROMIDE (ALL OTHER THERAPEUTIC PRODUCTS) [Concomitant]
  5. ATENOLOL [Concomitant]
  6. ZOCOR [Concomitant]
  7. ALLOPURINOL SODIUM [Concomitant]
  8. DICLOFENAC SODIUM [Concomitant]
  9. SIMVASTATIN [Concomitant]
  10. POTASSIUM CHLORIDE [Concomitant]
  11. IBUPROFEN [Concomitant]
  12. LISINOPRIL [Concomitant]
  13. GLUCOSAMINE [Concomitant]
  14. MVI (ERGOCALCIFEROL, ASCORBIC ACID, FOLIC ACID, THIAMINE HYDROCHLORIDE [Concomitant]
  15. CALCIUM CITRATE WITH VIT D (CALCIUM CITRATE, VITAMIN D) [Concomitant]
  16. CHONDROITIN (CHONDROITIN SULFATE SODIUM) [Concomitant]
  17. OMEGA-3 FATTY ACID-FISHOIL (OMEGA-3 TRIGLYCERIDES) [Concomitant]
  18. LUTEIN (XANTOFYL) [Concomitant]
  19. FLAX SEED OIL (LINUM USITATISSIMUM SEED OIL) [Concomitant]
  20. LECITHIN (LECITHIN) [Concomitant]
  21. SAW PALMETTO (SERENOA REPENS) [Concomitant]
  22. DHEA (PRASTERONE) [Concomitant]
  23. VITAMIN B6 [Concomitant]
  24. VITAMIN B12 [Concomitant]
  25. FOLIC ACID [Concomitant]
  26. CRESTOR [Concomitant]
  27. PLAVIX [Concomitant]
  28. PROTONIX [Concomitant]

REACTIONS (4)
  - CATHETERISATION CARDIAC [None]
  - CHEST PAIN [None]
  - DYSPNOEA [None]
  - STENT PLACEMENT [None]
